FAERS Safety Report 7944556-0 (Version None)
Quarter: 2011Q4

REPORT INFORMATION
  Report Type: 
  Country: None (occurrence: None)
  Receive Date: 20111114
  Receipt Date: 20110921
  Transmission Date: 20120403
  Serious: No
  Sender: FDA-Public Use
  Company Number: 1000024098

PATIENT
  Sex: Male

DRUGS (1)
  1. SAVELLA [Suspect]

REACTIONS (1)
  - URINARY TRACT INFECTION [None]
